FAERS Safety Report 7689036-5 (Version None)
Quarter: 2011Q3

REPORT INFORMATION
  Report Type: 
  Country: None (occurrence: None)
  Receive Date: 20110811
  Receipt Date: 20110727
  Transmission Date: 20111222
  Serious: Yes (Other)
  Sender: FDA-Public Use
  Company Number: TPA2011A04600

PATIENT
  Sex: Female

DRUGS (1)
  1. DEXILANT [Suspect]

REACTIONS (4)
  - BLOOD POTASSIUM DECREASED [None]
  - BLOOD MAGNESIUM DECREASED [None]
  - CARDIAC ARREST [None]
  - VENTRICULAR FIBRILLATION [None]
